FAERS Safety Report 6064357-0 (Version None)
Quarter: 2009Q1

REPORT INFORMATION
  Report Type: 
  Country: None (occurrence: None)
  Receive Date: 20090130
  Receipt Date: 20090121
  Transmission Date: 20090719
  Serious: Yes (Death)
  Sender: FDA-Public Use
  Company Number: 230001L09USA

PATIENT
  Age: 53 Year
  Sex: Female

DRUGS (1)
  1. INTERFERON BETA [Suspect]
     Indication: MULTIPLE SCLEROSIS
     Dosage: 3 IN 1 WEEKS

REACTIONS (8)
  - ADVERSE DRUG REACTION [None]
  - BREAST CANCER STAGE III [None]
  - DERMATOMYOSITIS [None]
  - ENDOCARDITIS [None]
  - METASTASES TO LIVER [None]
  - OESTROGEN RECEPTOR ASSAY POSITIVE [None]
  - ONCOLOGIC COMPLICATION [None]
  - SUPERIOR VENA CAVAL OCCLUSION [None]
